FAERS Safety Report 8217407-7 (Version None)
Quarter: 2012Q1

REPORT INFORMATION
  Report Type: 
  Country: None (occurrence: None)
  Receive Date: 20120315
  Receipt Date: 20120307
  Transmission Date: 20120608
  Serious: Yes (Death, Life-Threatening, Hospitalization)
  Sender: FDA-Public Use
  Company Number: 1203121

PATIENT
  Sex: Male
  Weight: 77.4 kg

DRUGS (3)
  1. CYCLOPHOSPHAMIDE [Suspect]
     Indication: CHRONIC LYMPHOCYTIC LEUKAEMIA
     Dosage: 600 MG/M2 ON WEEKS 1,5,9,13,17 AND 21, (UNKNOWN) INTRAVENOUS (NOT OTHERWISE SPECIFIED)
     Route: 042
     Dates: start: 20080616, end: 20081117
  2. RITUXAN [Suspect]
     Indication: CHRONIC LYMPHOCYTIC LEUKAEMIA
     Dosage: 375 MG/M2 OVER 4 HR/ON ONE DAY ON WEEKS 1, 5, 9, 13,17 AND 21 (UNKNOWN) INTRAVENOUS (NOT OTHERWISE S
     Route: 042
     Dates: start: 20080616, end: 20081117
  3. PENTOSTATIN [Suspect]
     Indication: CHRONIC LYMPHOCYTIC LEUKAEMIA
     Dosage: 4MG/M2 X 1 DAY WEEKS 1,5,9,13,17 AND 21, (UNKNOWN) INTRAVENOUS (NOT OTHERWISE SPECIFIED)
     Route: 042
     Dates: start: 20080616, end: 20081117

REACTIONS (11)
  - ANAEMIA HAEMOLYTIC AUTOIMMUNE [None]
  - REFUSAL OF TREATMENT BY PATIENT [None]
  - TREATMENT RELATED SECONDARY MALIGNANCY [None]
  - METASTASES TO PELVIS [None]
  - ASCITES [None]
  - CHRONIC LYMPHOCYTIC LEUKAEMIA RECURRENT [None]
  - ECONOMIC PROBLEM [None]
  - NEUTROPENIA [None]
  - ABDOMINAL PAIN [None]
  - BURKITT'S LYMPHOMA [None]
  - METASTASES TO PERITONEUM [None]
